FAERS Safety Report 5131913-3 (Version None)
Quarter: 2006Q4

REPORT INFORMATION
  Report Type: 
  Country: None (occurrence: None)
  Receive Date: 20061016
  Receipt Date: 20061003
  Transmission Date: 20070319
  Serious: Yes (Other)
  Sender: FDA-Public Use
  Company Number: 2006121089

PATIENT
  Sex: Female
  Weight: 90.7194 kg

DRUGS (1)
  1. DILANTIN [Suspect]
     Indication: CONVULSION

REACTIONS (3)
  - CONVULSION [None]
  - ECONOMIC PROBLEM [None]
  - TREATMENT NONCOMPLIANCE [None]
